FAERS Safety Report 5019416-8 (Version None)
Quarter: 2006Q2

REPORT INFORMATION
  Report Type: 
  Country: None (occurrence: None)
  Receive Date: 20060531
  Receipt Date: 20060523
  Transmission Date: 20061013
  Serious: Yes (Death)
  Sender: FDA-Public Use
  Company Number: GBWYE647623MAY06

PATIENT
  Age: 69 Year
  Sex: Female

DRUGS (9)
  1. IBUPROFEN [Suspect]
     Indication: OSTEOARTHRITIS
     Dosage: 400 MG 2X PER 1 DAY
     Route: 048
     Dates: start: 20060405
  2. CRESTOR [Suspect]
     Indication: HYPERLIPIDAEMIA
     Dosage: 10 MG FREQUENCY UNKNOWN
     Route: 048
     Dates: start: 20040101
  3. ZETIA [Suspect]
     Indication: HYPERLIPIDAEMIA
     Dosage: 10 MG FREQUENCY  UNKNOWN
     Route: 048
     Dates: start: 20040101
  4. SPIRONOLACTONE [Concomitant]
  5. COZAAR COMP (HYDROCHLOROTHIAZIDE/LOSARTAN POTASSIUM) [Concomitant]
  6. METFORMIN [Concomitant]
  7. ROSIGLITAZONE [Concomitant]
  8. BISOCARD (BISOPROLOL) [Concomitant]
  9. ASPIRIN [Concomitant]

REACTIONS (2)
  - RENAL FAILURE ACUTE [None]
  - RHABDOMYOLYSIS [None]
